FAERS Safety Report 8338765-9 (Version None)
Quarter: 2012Q2

REPORT INFORMATION
  Report Type: 
  Country: None (occurrence: None)
  Receive Date: 20120504
  Receipt Date: 20120424
  Transmission Date: 20120825
  Serious: Yes (Hospitalization, Other)
  Sender: FDA-Public Use
  Company Number: US-ABBOTT-12P-163-0929042-00

PATIENT
  Age: 60 Year
  Sex: Female

DRUGS (3)
  1. EXCEDRIN EXTRA STRENGTH TABLETS [Suspect]
     Indication: HEADACHE
  2. VICODIN [Suspect]
     Indication: BACK PAIN
     Dates: start: 19820101
  3. EXCEDRIN EXTRA STRENGTH TABLETS [Suspect]
     Indication: BACK PAIN
     Dosage: 2-8 DF QD
     Route: 048

REACTIONS (12)
  - MEMORY IMPAIRMENT [None]
  - SURGICAL FAILURE [None]
  - TENDONITIS [None]
  - DRUG ADMINISTRATION ERROR [None]
  - HERNIA [None]
  - COMA [None]
  - BLADDER CANCER [None]
  - IMPAIRED DRIVING ABILITY [None]
  - INTRACRANIAL ANEURYSM [None]
  - HEADACHE [None]
  - CONVULSION [None]
  - CEREBROVASCULAR ACCIDENT [None]
